FAERS Safety Report 23853411 (Version 1)
Quarter: 2024Q2

REPORT INFORMATION
  Report Type: Spontaneous
  Country: IT (occurrence: IT)
  Receive Date: 20240514
  Receipt Date: 20240514
  Transmission Date: 20240715
  Serious: Yes (Hospitalization, Other)
  Sender: FDA-Public Use
  Company Number: IT-SUN PHARMACEUTICAL INDUSTRIES LTD-2024R1-445562

PATIENT
  Age: 33 Year
  Sex: Male

DRUGS (6)
  1. CISPLATIN [Suspect]
     Active Substance: CISPLATIN
     Indication: NTRK gene fusion cancer
     Dosage: 120 MILLIGRAM/SQ. METER 48 H CONTINUOUS INFUSION
     Route: 065
  2. CISPLATIN [Suspect]
     Active Substance: CISPLATIN
     Indication: Sarcoma
  3. DOXORUBICIN [Suspect]
     Active Substance: DOXORUBICIN
     Indication: NTRK gene fusion cancer
     Dosage: 75 MILLIGRAM/SQ. METER 24 H
     Route: 065
  4. DOXORUBICIN [Suspect]
     Active Substance: DOXORUBICIN
     Indication: Sarcoma
  5. METHOTREXATE [Suspect]
     Active Substance: METHOTREXATE
     Indication: NTRK gene fusion cancer
     Dosage: 12 GRAM PER SQUARE METRE
     Route: 065
  6. METHOTREXATE [Suspect]
     Active Substance: METHOTREXATE
     Indication: Sarcoma

REACTIONS (2)
  - Acute kidney injury [Unknown]
  - Disease progression [Unknown]
